FAERS Safety Report 7590736-6 (Version None)
Quarter: 2011Q3

REPORT INFORMATION
  Report Type: 
  Country: None (occurrence: None)
  Receive Date: 20110705
  Receipt Date: 20110621
  Transmission Date: 20111222
  Serious: Yes (Hospitalization)
  Sender: FDA-Public Use
  Company Number: PHHY2011DE55047

PATIENT
  Age: 66 Year
  Sex: Female
  Weight: 56 kg

DRUGS (2)
  1. RAMIPRIL [Suspect]
     Dosage: 1.25 MG, DAILY
     Route: 048
     Dates: start: 20101205, end: 20110419
  2. ZOMETA [Suspect]
     Dosage: 4 MG, PER DAY
     Route: 042
     Dates: start: 20110406, end: 20110406

REACTIONS (3)
  - RENAL FAILURE ACUTE [None]
  - CONVULSION [None]
  - URINARY TRACT INFECTION [None]
